FAERS Safety Report 7735697-1 (Version None)
Quarter: 2011Q3

REPORT INFORMATION
  Report Type: 
  Country: None (occurrence: None)
  Receive Date: 20110908
  Receipt Date: 20110901
  Transmission Date: 20111222
  Serious: Yes (Other)
  Sender: FDA-Public Use
  Company Number: CA-BRISTOL-MYERS SQUIBB COMPANY-15446032

PATIENT
  Age: 63 Year
  Sex: Male

DRUGS (3)
  1. BELATACEPT [Suspect]
     Indication: RENAL TRANSPLANT
     Route: 042
     Dates: start: 20060830
  2. CELLCEPT [Suspect]
     Dosage: 2006-25AUG2011 1G BID 26AUG11-ONG 500MG BID
     Dates: start: 20060101
  3. PREDNISONE TAB [Suspect]
     Dates: start: 20060101

REACTIONS (1)
  - SQUAMOUS CELL CARCINOMA OF SKIN [None]
